FAERS Safety Report 8977522 (Version 2)
Quarter: 2013Q3

REPORT INFORMATION
  Report Type: Report from Study
  Country: JP (occurrence: JP)
  Receive Date: 20121220
  Receipt Date: 20130729
  Transmission Date: 20140515
  Serious: Yes (Other)
  Sender: FDA-Public Use
  Company Number: JP-VERTEX PHARMACEUTICALS INC.-2012-026430

PATIENT
  Age: 64 Year
  Sex: Male

DRUGS (11)
  1. VX-950 (TELAPREVIR) [Suspect]
     Indication: CHRONIC HEPATITIS C
     Dosage: 2250 MG, QD
     Route: 048
     Dates: start: 20120827, end: 20120909
  2. VX-950 (TELAPREVIR) [Suspect]
     Dosage: 1500 MG, QD
     Route: 048
     Dates: start: 20120910, end: 20120923
  3. VX-950 (TELAPREVIR) [Suspect]
     Dosage: 1000 MG, QD
     Route: 048
     Dates: start: 20120924, end: 20121105
  4. REBETOL [Suspect]
     Indication: CHRONIC HEPATITIS C
     Dosage: 800 MG, QD
     Route: 048
     Dates: start: 20120827, end: 20120909
  5. REBETOL [Suspect]
     Dosage: 400 MG, QD
     Route: 048
     Dates: start: 20120910, end: 20121105
  6. REBETOL [Suspect]
     Dosage: 400 MG, QD
     Dates: start: 20121112
  7. PEGINTERFERON ALFA-2B [Suspect]
     Indication: CHRONIC HEPATITIS C
     Dosage: 100 ?G, QW
     Route: 058
     Dates: start: 20120827
  8. GLYCERIN [Concomitant]
     Dosage: 60 ML, QD/PRN
     Route: 054
     Dates: start: 20120827, end: 20120827
  9. MAGMITT [Concomitant]
     Dosage: 990 MG, QD
     Route: 048
     Dates: end: 20120904
  10. MAGMITT [Concomitant]
     Dosage: 1980 MG, QD
     Route: 048
     Dates: start: 20120905, end: 20121028
  11. MAGMITT [Concomitant]
     Dosage: 990 MG, QD
     Route: 048
     Dates: start: 20121029

REACTIONS (1)
  - Orthostatic hypotension [Recovered/Resolved]
